FAERS Safety Report 5048142-4 (Version None)
Quarter: 2006Q3

REPORT INFORMATION
  Report Type: 
  Country: None (occurrence: None)
  Receive Date: 20060711
  Receipt Date: 20060630
  Transmission Date: 20061208
  Serious: Yes (Other)
  Sender: FDA-Public Use
  Company Number: US-JNJFOC-20060700484

PATIENT
  Sex: Male

DRUGS (2)
  1. REMICADE [Suspect]
     Indication: CROHN'S DISEASE
     Dosage: TOTAL OF 3 INFUSIONS ON UNKNOWN DATES
     Route: 042
  2. IMURAN [Concomitant]
     Indication: CROHN'S DISEASE

REACTIONS (2)
  - PHLEBITIS [None]
  - RETINAL VASCULAR THROMBOSIS [None]
